FAERS Safety Report 6119230-6 (Version None)
Quarter: 2009Q1

REPORT INFORMATION
  Report Type: 
  Country: None (occurrence: None)
  Receive Date: 20090316
  Receipt Date: 20090303
  Transmission Date: 20090719
  Serious: Yes (Other)
  Sender: FDA-Public Use
  Company Number: US-ROCHE-619198

PATIENT
  Age: 42 Year
  Sex: Female

DRUGS (2)
  1. TAMIFLU [Suspect]
     Indication: VIRAL INFECTION
     Dosage: DOSE: 2 PER DAY STOPPED AFTER TAKING 3RD DOSE
     Route: 065
     Dates: start: 20090219
  2. TYLENOL [Concomitant]

REACTIONS (4)
  - FATIGUE [None]
  - NAUSEA [None]
  - PYREXIA [None]
  - VOMITING [None]
